FAERS Safety Report 4576025-2 (Version None)
Quarter: 2005Q1

REPORT INFORMATION
  Report Type: 
  Country: None (occurrence: None)
  Receive Date: 20050204
  Receipt Date: 20050124
  Transmission Date: 20050727
  Serious: Yes (Death)
  Sender: FDA-Public Use
  Company Number: FR-2004-033406

PATIENT
  Age: 38 Year
  Sex: Male
  Weight: 60 kg

DRUGS (3)
  1. REFLUDAN [Suspect]
     Indication: HEPARIN-INDUCED THROMBOCYTOPENIA
     Dosage: 50 MG, INTRAVENOUS
     Route: 042
  2. PREVISCAN (FLUINDIONE) [Concomitant]
  3. ORGARAN [Concomitant]

REACTIONS (1)
  - HAEMORRHAGE [None]
